FAERS Safety Report 4732499-5 (Version None)
Quarter: 2005Q3

REPORT INFORMATION
  Report Type: 
  Country: None (occurrence: None)
  Receive Date: 20050803
  Receipt Date: 20050727
  Transmission Date: 20060218
  Serious: Yes (Hospitalization)
  Sender: FDA-Public Use
  Company Number: US-GLAXOSMITHKLINE-A0567844A

PATIENT
  Age: 28 Year
  Sex: Female

DRUGS (1)
  1. LAMICTAL [Suspect]
     Indication: DRUG USE FOR UNKNOWN INDICATION
     Route: 048
     Dates: start: 20050602

REACTIONS (18)
  - ASTHENIA [None]
  - BACK PAIN [None]
  - DEHYDRATION [None]
  - EYE PAIN [None]
  - FATIGUE [None]
  - HEADACHE [None]
  - INCOHERENT [None]
  - MALAISE [None]
  - MENINGITIS [None]
  - MENINGITIS ASEPTIC [None]
  - NAUSEA [None]
  - NECK PAIN [None]
  - PAIN IN EXTREMITY [None]
  - PHOTOPHOBIA [None]
  - PYREXIA [None]
  - RASH GENERALISED [None]
  - VIRAL INFECTION [None]
  - VOMITING [None]
